FAERS Safety Report 7585345-9 (Version None)
Quarter: 2011Q3

REPORT INFORMATION
  Report Type: 
  Country: None (occurrence: None)
  Receive Date: 20110701
  Receipt Date: 20081001
  Transmission Date: 20111222
  Serious: Yes (Other)
  Sender: FDA-Public Use
  Company Number: US-BAYER-201042093NA

PATIENT
  Age: 44 Year
  Sex: Female
  Weight: 76 kg

DRUGS (14)
  1. LANOXIN [Concomitant]
     Dosage: UNK
     Dates: start: 19730101, end: 19950101
  2. HEPARIN [Concomitant]
     Dosage: 2000UNITS
     Route: 042
     Dates: start: 19950801
  3. VERSED [Concomitant]
     Route: 042
  4. PROTAMINE SULFATE [Concomitant]
     Dosage: 400 MG, UNK
  5. VANCOMYCIN [Concomitant]
     Dosage: 1 G, UNK
     Route: 042
  6. FENTANYL [Concomitant]
     Route: 042
  7. COUMADIN [Concomitant]
     Dosage: UNK
     Dates: start: 19820101
  8. PHENYLEPHRINE HCL [Concomitant]
     Dosage: 43 CC
  9. TRASYLOL [Suspect]
     Indication: MITRAL VALVE REPLACEMENT
     Dosage: UNK
     Route: 042
     Dates: start: 19950801, end: 19950801
  10. TRASYLOL [Suspect]
     Indication: TRICUSPID VALVE REPLACEMENT
     Dosage: UNK
     Route: 042
     Dates: start: 20061115
  11. POTASSIUM [Concomitant]
     Dosage: UNK
     Dates: start: 19730101
  12. LIDOCAINE [Concomitant]
     Dosage: 200 MG, UNK
  13. FUROSEMIDE [Concomitant]
     Dosage: UNK
     Dates: start: 19730101
  14. PROPOFOL [Concomitant]

REACTIONS (9)
  - RENAL FAILURE [None]
  - COMA [None]
  - DEPRESSION [None]
  - INJURY [None]
  - EMOTIONAL DISTRESS [None]
  - PAIN [None]
  - MULTI-ORGAN FAILURE [None]
  - ANXIETY [None]
  - AMNESIA [None]
